FAERS Safety Report 7051566-7 (Version None)
Quarter: 2010Q4

REPORT INFORMATION
  Report Type: 
  Country: None (occurrence: None)
  Receive Date: 20101019
  Receipt Date: 20101006
  Transmission Date: 20110411
  Serious: Yes (Hospitalization, Other)
  Sender: FDA-Public Use
  Company Number: US-ROCHE-552207

PATIENT
  Sex: Male
  Weight: 83.9 kg

DRUGS (2)
  1. ACCUTANE [Suspect]
     Route: 065
     Dates: start: 19950515, end: 19950713
  2. ACCUTANE [Suspect]
     Route: 065
     Dates: start: 19950714, end: 19951015

REACTIONS (8)
  - ANKYLOSING SPONDYLITIS [None]
  - ANXIETY [None]
  - COLITIS ULCERATIVE [None]
  - EPISTAXIS [None]
  - IMPETIGO [None]
  - INFLAMMATORY BOWEL DISEASE [None]
  - POUCHITIS [None]
  - XEROSIS [None]
